FAERS Safety Report 24278603 (Version 2)
Quarter: 2024Q3

REPORT INFORMATION
  Report Type: Report from Study
  Country: US (occurrence: US)
  Receive Date: 20240903
  Receipt Date: 20240927
  Transmission Date: 20241017
  Serious: No
  Sender: SUNOVION
  Company Number: US-SUMITOMO PHARMA SWITZERLAND GMBH-2024SPA000980

PATIENT

DRUGS (9)
  1. ORGOVYX [Suspect]
     Active Substance: RELUGOLIX
     Indication: Prostate cancer
     Dosage: 360 MG, SINGLE
     Route: 048
     Dates: start: 20240801, end: 20240801
  2. ORGOVYX [Suspect]
     Active Substance: RELUGOLIX
     Dosage: 120 MG, QD
     Route: 048
     Dates: start: 20240802
  3. PRAVASTATIN [Concomitant]
     Active Substance: PRAVASTATIN
  4. METOPROLOL SUCCINATE [Concomitant]
     Active Substance: METOPROLOL SUCCINATE
  5. XARELTO [Concomitant]
     Active Substance: RIVAROXABAN
  6. VITAMIN B COMPLEX [Concomitant]
     Active Substance: CYANOCOBALAMIN\DEXPANTHENOL\NIACINAMIDE\PYRIDOXINE HYDROCHLORIDE\RIBOFLAVIN 5^-PHOSPHATE SODIUM\THIA
  7. FISH OIL [Concomitant]
     Active Substance: FISH OIL
  8. VITAMIN D [Concomitant]
     Active Substance: VITAMIN D NOS
  9. CIPROFLOXACIN [Concomitant]
     Active Substance: CIPROFLOXACIN

REACTIONS (5)
  - Mood altered [Unknown]
  - Feeling abnormal [Unknown]
  - Emotional disorder [Unknown]
  - Muscle atrophy [Unknown]
  - Hot flush [Unknown]
